FAERS Safety Report 24777891 (Version 1)
Quarter: 2024Q4

REPORT INFORMATION
  Report Type: Spontaneous
  Country: US (occurrence: US)
  Receive Date: 20241226
  Receipt Date: 20241226
  Transmission Date: 20250114
  Serious: No
  Sender: PFIZER
  Company Number: US-PFIZER INC-PV202400167253

PATIENT
  Age: 44 Year
  Sex: Female

DRUGS (1)
  1. MEKTOVI [Suspect]
     Active Substance: BINIMETINIB
     Indication: Malignant melanoma in situ
     Dosage: 30 MG, 2X/DAY (2 TABLETS IN THE MORNING AND EVENING)
     Route: 048

REACTIONS (2)
  - Drug intolerance [Unknown]
  - Off label use [Unknown]
